FAERS Safety Report 16193123 (Version 2)
Quarter: 2019Q2

REPORT INFORMATION
  Report Type: Report from Study
  Country: None (occurrence: CA)
  Receive Date: 20190413
  Receipt Date: 20190612
  Transmission Date: 20190711
  Serious: Yes (Life-Threatening, Hospitalization, Other)
  Sender: FDA-Public Use
  Company Number: CA-ABBVIE-19K-028-2690098-00

PATIENT
  Age: 65 Year
  Sex: Female

DRUGS (2)
  1. LT4 [Concomitant]
     Indication: PRODUCT USED FOR UNKNOWN INDICATION
     Route: 048
  2. HUMIRA [Suspect]
     Active Substance: ADALIMUMAB
     Indication: COLITIS ULCERATIVE
     Route: 058
     Dates: start: 20170519, end: 201812

REACTIONS (2)
  - Rectal adenocarcinoma [Recovering/Resolving]
  - Vaginal disorder [Unknown]

NARRATIVE: CASE EVENT DATE: 201901
